FAERS Safety Report 7230114-2 (Version None)
Quarter: 2011Q1

REPORT INFORMATION
  Report Type: 
  Country: None (occurrence: None)
  Receive Date: 20110118
  Receipt Date: 20110111
  Transmission Date: 20110831
  Serious: Yes (Other)
  Sender: FDA-Public Use
  Company Number: GB-TEVA-263312ISR

PATIENT
  Age: 54 Year
  Sex: Male

DRUGS (2)
  1. CLOZAPINE [Suspect]
     Indication: SCHIZOPHRENIA
     Route: 048
     Dates: start: 20101108
  2. DIAZEPAM [Suspect]
     Dates: start: 20101124

REACTIONS (5)
  - TACHYCARDIA [None]
  - HALLUCINATION [None]
  - AGITATION [None]
  - BLOOD PRESSURE DECREASED [None]
  - SOMNOLENCE [None]
